FAERS Safety Report 11985488 (Version 2)
Quarter: 2016Q4

REPORT INFORMATION
  Report Type: Spontaneous
  Country: US (occurrence: US)
  Receive Date: 20160201
  Receipt Date: 20161215
  Transmission Date: 20170206
  Serious: Yes (Other)
  Sender: FDA-Public Use
  Company Number: US-ELI_LILLY_AND_COMPANY-US201601009707

PATIENT
  Sex: Female
  Weight: 110 kg

DRUGS (2)
  1. CYMBALTA [Suspect]
     Active Substance: DULOXETINE HYDROCHLORIDE
     Indication: PAIN
     Dosage: 60 MG, QD
     Route: 048
  2. CYMBALTA [Suspect]
     Active Substance: DULOXETINE HYDROCHLORIDE
     Indication: DEPRESSION

REACTIONS (7)
  - Restless legs syndrome [Unknown]
  - Withdrawal syndrome [Unknown]
  - Paraesthesia [Unknown]
  - Vertigo [Unknown]
  - Tremor [Unknown]
  - Dizziness [Unknown]
  - Headache [Unknown]
